FAERS Safety Report 24650465 (Version 1)
Quarter: 2024Q4

REPORT INFORMATION
  Report Type: Spontaneous
  Country: JP (occurrence: JP)
  Receive Date: 20241122
  Receipt Date: 20241122
  Transmission Date: 20250114
  Serious: Yes (Disabling)
  Sender: ROCHE
  Company Number: JP-CHUGAI-2024040242AA

PATIENT
  Age: 9 Decade
  Sex: Male

DRUGS (1)
  1. PHESGO [Suspect]
     Active Substance: HYALURONIDASE-ZZXF\PERTUZUMAB\TRASTUZUMAB
     Indication: Colorectal cancer
     Dosage: UNK UNK, ONCE/3WEEKS
     Route: 050

REACTIONS (1)
  - Renal impairment [Not Recovered/Not Resolved]
